FAERS Safety Report 5858584-2 (Version None)
Quarter: 2008Q3

REPORT INFORMATION
  Report Type: 
  Country: None (occurrence: None)
  Receive Date: 20080826
  Receipt Date: 20080814
  Transmission Date: 20090109
  Serious: Yes (Other)
  Sender: FDA-Public Use
  Company Number: ES-PFIZER INC-2008068278

PATIENT
  Age: 31 Year
  Sex: Female

DRUGS (3)
  1. ZYVOXID [Suspect]
     Indication: RESPIRATORY TRACT INFECTION
     Dosage: DAILY DOSE:1.2GRAM-FREQ:EVERY DAY
     Route: 042
     Dates: start: 20080513, end: 20080519
  2. PHENYTOIN [Suspect]
     Indication: CONVULSION PROPHYLAXIS
     Dosage: DAILY DOSE:450MG-FREQ:EVERY DAY
     Route: 042
     Dates: start: 20080430, end: 20080518
  3. MERONEM [Suspect]
     Indication: RESPIRATORY TRACT INFECTION
     Route: 042
     Dates: start: 20080512, end: 20080519

REACTIONS (1)
  - HEPATITIS [None]
